FAERS Safety Report 19673235 (Version 2)
Quarter: 2021Q3

REPORT INFORMATION
  Report Type: Spontaneous
  Country: GB (occurrence: GB)
  Receive Date: 20210809
  Receipt Date: 20210817
  Transmission Date: 20211014
  Serious: Yes (Other)
  Sender: FDA-Public Use
  Company Number: GB-AUROBINDO-AUR-APL-2021-033338

PATIENT
  Age: 49 Year
  Sex: Female
  Weight: 73.7 kg

DRUGS (3)
  1. OLANZAPIN [Concomitant]
     Active Substance: OLANZAPINE
     Indication: ILL-DEFINED DISORDER
     Dosage: UNK
     Route: 065
  2. ARIPIPRAZOLE. [Suspect]
     Active Substance: ARIPIPRAZOLE
     Indication: ILL-DEFINED DISORDER
     Dosage: 15 MILLIGRAM
     Route: 048
     Dates: start: 20210712, end: 20210725
  3. OLANZAPIN [Concomitant]
     Active Substance: OLANZAPINE
     Dosage: UNK
     Route: 065

REACTIONS (14)
  - Insomnia [Not Recovered/Not Resolved]
  - Headache [Not Recovered/Not Resolved]
  - Musculoskeletal stiffness [Not Recovered/Not Resolved]
  - Dizziness [Not Recovered/Not Resolved]
  - Haemorrhoids [Unknown]
  - Adverse drug reaction [Not Recovered/Not Resolved]
  - Confusional state [Unknown]
  - Constipation [Unknown]
  - Chest pain [Not Recovered/Not Resolved]
  - Medication error [Unknown]
  - Amnesia [Unknown]
  - Joint swelling [Unknown]
  - Vision blurred [Unknown]
  - Disturbance in attention [Unknown]

NARRATIVE: CASE EVENT DATE: 20210712
